FAERS Safety Report 9740567 (Version 1)
Quarter: 2013Q4

REPORT INFORMATION
  Report Type: Spontaneous
  Country: US (occurrence: US)
  Receive Date: 20131209
  Receipt Date: 20131209
  Transmission Date: 20140711
  Serious: No
  Sender: FDA-Public Use
  Company Number: US-BIOGENIDEC-2013BI090856

PATIENT
  Age: 30 Year
  Sex: Male
  Weight: 63 kg

DRUGS (3)
  1. TECFIDERA [Suspect]
     Indication: MULTIPLE SCLEROSIS
     Route: 048
     Dates: start: 20130817
  2. ACCUTANE [Concomitant]
  3. CIALIS [Concomitant]

REACTIONS (4)
  - Night sweats [Unknown]
  - Rhinorrhoea [Unknown]
  - Pruritus [Unknown]
  - Flushing [Unknown]
